FAERS Safety Report 8428583-5 (Version None)
Quarter: 2012Q2

REPORT INFORMATION
  Report Type: 
  Country: None (occurrence: None)
  Receive Date: 20120606
  Receipt Date: 20120606
  Transmission Date: 20120825
  Serious: Yes (Life-Threatening, Disabling, Congenital Anomaly, Other)
  Sender: FDA-Public Use
  Company Number: None

PATIENT
  Sex: Male
  Weight: 79.3795 kg

DRUGS (2)
  1. INVEGA SUSTENNA [Suspect]
     Indication: SUBSTANCE USE
     Dosage: 135 1-2 MOUNTH
  2. INVEGA SUSTENNA [Suspect]
     Indication: MENTAL DISORDER
     Dosage: 135 1-2 MOUNTH

REACTIONS (2)
  - UNEVALUABLE EVENT [None]
  - FOOD INTERACTION [None]
